FAERS Safety Report 11742057 (Version 1)
Quarter: 2015Q4

REPORT INFORMATION
  Report Type: Spontaneous
  Country: US (occurrence: US)
  Receive Date: 20151116
  Receipt Date: 20151116
  Transmission Date: 20160304
  Serious: No
  Sender: FDA-Public Use
  Company Number: US-PFIZER INC-2015386622

PATIENT
  Age: 52 Year
  Sex: Male

DRUGS (3)
  1. DILANTIN [Suspect]
     Active Substance: PHENYTOIN
     Dosage: UNK
  2. INVOKANA [Suspect]
     Active Substance: CANAGLIFLOZIN
     Dosage: UNK
  3. VICTOZA [Suspect]
     Active Substance: LIRAGLUTIDE
     Dosage: UNK

REACTIONS (1)
  - Drug hypersensitivity [Unknown]
